FAERS Safety Report 8802571 (Version 2)
Quarter: 2012Q4

REPORT INFORMATION
  Report Type: 
  Country: IT (occurrence: IT)
  Receive Date: 20120921
  Receipt Date: 20121008
  Transmission Date: 20130627
  Serious: Yes (Hospitalization)
  Sender: FDA-Public Use
  Company Number: PHHY2012IT080764

PATIENT
  Age: 52 Year
  Sex: Male

DRUGS (2)
  1. SANDIMMUN [Suspect]
     Indication: PROPHYLAXIS AGAINST TRANSPLANT REJECTION
     Dosage: 150 mg, daily
     Route: 048
     Dates: start: 19950421
  2. SIMVASTATIN [Interacting]
     Indication: DYSLIPIDAEMIA
     Dosage: 40 mg, daily
     Route: 048
     Dates: start: 20030101, end: 20030903

REACTIONS (6)
  - Erectile dysfunction [Recovering/Resolving]
  - Renal failure acute [Recovering/Resolving]
  - Rhabdomyolysis [Recovering/Resolving]
  - Myalgia [Recovering/Resolving]
  - Malaise [Recovering/Resolving]
  - Drug interaction [Unknown]
